FAERS Safety Report 8411772-3 (Version None)
Quarter: 2012Q2

REPORT INFORMATION
  Report Type: 
  Country: None (occurrence: None)
  Receive Date: 20120605
  Receipt Date: 20120514
  Transmission Date: 20120825
  Serious: No
  Sender: FDA-Public Use
  Company Number: US-AMGEN-USASP2012030244

PATIENT
  Age: 58 Year
  Sex: Female

DRUGS (1)
  1. ENBREL [Suspect]
     Indication: RHEUMATOID ARTHRITIS
     Dosage: 50 MG, QWK
     Dates: start: 20120506

REACTIONS (7)
  - PARANASAL SINUS HYPERSECRETION [None]
  - RHINORRHOEA [None]
  - VOMITING [None]
  - DYSPNOEA [None]
  - NAUSEA [None]
  - NASAL CONGESTION [None]
  - EYE PRURITUS [None]
